FAERS Safety Report 6585149-X (Version None)
Quarter: 2010Q1

REPORT INFORMATION
  Report Type: 
  Country: None (occurrence: None)
  Receive Date: 20100217
  Receipt Date: 20100211
  Transmission Date: 20100710
  Serious: Yes (Hospitalization)
  Sender: FDA-Public Use
  Company Number: CA-ROCHE-684906

PATIENT
  Age: 54 Year
  Sex: Male

DRUGS (4)
  1. ACCUTANE [Suspect]
     Indication: ACNE
     Route: 048
     Dates: start: 20090905, end: 20090919
  2. ACCUTANE [Suspect]
     Route: 048
     Dates: start: 20090919, end: 20091016
  3. TRILEPTAL [Concomitant]
     Dates: start: 20030101
  4. FLOMAX [Concomitant]

REACTIONS (2)
  - ACNE [None]
  - HYPONATRAEMIA [None]
